FAERS Safety Report 12534862 (Version 1)
Quarter: 2016Q3

REPORT INFORMATION
  Report Type: Spontaneous
  Country: CA (occurrence: CA)
  Receive Date: 20160707
  Receipt Date: 20160707
  Transmission Date: 20161109
  Serious: Yes (Hospitalization, Disabling, Other)
  Sender: FDA-Public Use
  Company Number: CA-ASTRAZENECA-2016SE71758

PATIENT
  Age: 37 Year
  Sex: Male
  Weight: 102 kg

DRUGS (5)
  1. SEROQUEL XR [Suspect]
     Active Substance: QUETIAPINE FUMARATE
     Route: 048
  2. CARBOLITH [Suspect]
     Active Substance: LITHIUM CARBONATE
     Route: 048
  3. ALERTEC [Concomitant]
     Active Substance: MODAFINIL
  4. RISPERDAL [Suspect]
     Active Substance: RISPERIDONE
     Route: 048
  5. ZYPREXA [Suspect]
     Active Substance: OLANZAPINE
     Indication: WEIGHT INCREASED
     Dosage: 20.0MG UNKNOWN
     Route: 048

REACTIONS (2)
  - Impaired self-care [Recovered/Resolved]
  - Mental impairment [Recovered/Resolved]
